FAERS Safety Report 12498996 (Version 1)
Quarter: 2016Q2

REPORT INFORMATION
  Report Type: Spontaneous
  Country: US (occurrence: US)
  Receive Date: 20160627
  Receipt Date: 20160627
  Transmission Date: 20160815
  Serious: No
  Sender: FDA-Public Use
  Company Number: US-TEVA-656304USA

PATIENT
  Sex: Female

DRUGS (1)
  1. TRI-LO SPRINTEC [Suspect]
     Active Substance: ETHINYL ESTRADIOL\NORGESTIMATE
     Dosage: 0.180 MG/0.025 MG; 0.215 MG/0.025 MG; 0.250 MG/0.025 MG

REACTIONS (3)
  - Urticaria [Not Recovered/Not Resolved]
  - Swelling face [Unknown]
  - Pharyngeal oedema [Unknown]
